FAERS Safety Report 24651781 (Version 2)
Quarter: 2025Q2

REPORT INFORMATION
  Report Type: Spontaneous
  Country: US (occurrence: US)
  Receive Date: 20241122
  Receipt Date: 20250417
  Transmission Date: 20250717
  Serious: Yes (Other)
  Sender: SANOFI AVENTIS
  Company Number: US-SA-2024SA340265

PATIENT
  Age: 69 Year
  Sex: Male
  Weight: 79.8 kg

DRUGS (23)
  1. DUPIXENT [Suspect]
     Active Substance: DUPILUMAB
     Indication: Asthma
     Route: 058
  2. DUPIXENT [Suspect]
     Active Substance: DUPILUMAB
     Dosage: 300 MG, QOW
     Route: 058
  3. ATROVENT HFA [Concomitant]
     Active Substance: IPRATROPIUM BROMIDE
  4. HYOSCYAMINE SULFATE [Concomitant]
     Active Substance: HYOSCYAMINE SULFATE
  5. COMBIVENT RESPIMAT [Concomitant]
     Active Substance: ALBUTEROL SULFATE\IPRATROPIUM BROMIDE
  6. TESTOSTERONE [Concomitant]
     Active Substance: TESTOSTERONE
  7. BUDESONIDE\FORMOTEROL FUMARATE [Concomitant]
     Active Substance: BUDESONIDE\FORMOTEROL FUMARATE
  8. PREDNISONE [Concomitant]
     Active Substance: PREDNISONE
  9. TRAMADOL HCL [Concomitant]
     Active Substance: TRAMADOL HYDROCHLORIDE
  10. ALBUTEROL SULFATE [Concomitant]
     Active Substance: ALBUTEROL SULFATE
  11. AMLODIPINE BESYLATE [Concomitant]
     Active Substance: AMLODIPINE BESYLATE
  12. ACETAMINOPHEN\HYDROCODONE [Concomitant]
     Active Substance: ACETAMINOPHEN\HYDROCODONE
  13. BREZTRI [Concomitant]
     Active Substance: BUDESONIDE\FORMOTEROL\GLYCOPYRROLATE
  14. LOSARTAN POTASSIUM [Concomitant]
     Active Substance: LOSARTAN POTASSIUM
  15. MELOXICAM [Concomitant]
     Active Substance: MELOXICAM
  16. ALBUTEROL\IPRATROPIUM [Concomitant]
     Active Substance: ALBUTEROL\IPRATROPIUM
  17. METHOCARBAMOL [Concomitant]
     Active Substance: METHOCARBAMOL
  18. AZITHROMYCIN [Concomitant]
     Active Substance: AZITHROMYCIN
  19. ROFLUMILAST [Concomitant]
     Active Substance: ROFLUMILAST
  20. SIMVASTATIN [Concomitant]
     Active Substance: SIMVASTATIN
  21. MOMETASONE FUROATE [Concomitant]
     Active Substance: MOMETASONE FUROATE
  22. PANTOPRAZOLE SODIUM [Concomitant]
     Active Substance: PANTOPRAZOLE SODIUM
  23. SENNA LEAF [Concomitant]
     Active Substance: SENNA LEAF

REACTIONS (5)
  - Spinal fracture [Unknown]
  - Muscle spasms [Unknown]
  - Gait disturbance [Unknown]
  - Pruritus [Unknown]
  - Hypersensitivity [Unknown]
